FAERS Safety Report 5052186-6 (Version None)
Quarter: 2006Q3

REPORT INFORMATION
  Report Type: 
  Country: None (occurrence: None)
  Receive Date: 20060714
  Receipt Date: 20060714
  Transmission Date: 20061208
  Serious: Yes (Life-Threatening, Hospitalization)
  Sender: FDA-Public Use
  Company Number: None

PATIENT
  Age: 35 Year
  Sex: Female
  Weight: 45 kg

DRUGS (12)
  1. LINEZOLID [Suspect]
     Indication: MYCOBACTERIUM AVIUM COMPLEX INFECTION
     Dosage: 600MG   TWICE DAILY   PO
     Route: 048
     Dates: start: 20060108, end: 20060212
  2. TENOFOVIR [Concomitant]
  3. EMTRICITABINE [Concomitant]
  4. EFAVIRENZ [Concomitant]
  5. PYRIDOXINE HCL [Concomitant]
  6. ETHAMBUTOL HCL [Concomitant]
  7. CLARITHROMYCIN [Concomitant]
  8. ATOVAQUONE [Concomitant]
  9. VALACYCLOVIR [Concomitant]
  10. EPOGEN [Concomitant]
  11. LEUKINE [Concomitant]
  12. LEUCOVORIN CALCIUM [Concomitant]

REACTIONS (2)
  - HAEMODIALYSIS [None]
  - LACTIC ACIDOSIS [None]
